FAERS Safety Report 25032737 (Version 2)
Quarter: 2025Q1

REPORT INFORMATION
  Report Type: Spontaneous
  Country: IT (occurrence: IT)
  Receive Date: 20250303
  Receipt Date: 20250306
  Transmission Date: 20250409
  Serious: Yes (Hospitalization)
  Sender: BIOMARIN
  Company Number: IT-SA-2025SA058398

PATIENT

DRUGS (1)
  1. LARONIDASE [Suspect]
     Active Substance: LARONIDASE
     Indication: Mucopolysaccharidosis I
     Dosage: 8 DF (VIALS), QW
     Route: 041
     Dates: start: 20200416, end: 20250220

REACTIONS (1)
  - Umbilical hernia [Recovered/Resolved]

NARRATIVE: CASE EVENT DATE: 20240101
